FAERS Safety Report 4888664-X (Version None)
Quarter: 2005Q4

REPORT INFORMATION
  Report Type: 
  Country: None (occurrence: None)
  Receive Date: 20051215
  Receipt Date: 20050519
  Transmission Date: 20060501
  Serious: Yes (Hospitalization)
  Sender: FDA-Public Use
  Company Number: 2005010194

PATIENT
  Age: 84 Year
  Sex: Female

DRUGS (3)
  1. BEXTRA [Suspect]
     Indication: OSTEOPOROSIS
     Dosage: 10 MG (10 MG,1 IN 1 D)
     Dates: start: 20040101, end: 20040101
  2. CELEBREX [Suspect]
     Indication: OSTEOPOROSIS
  3. ARTHROTEC [Concomitant]

REACTIONS (5)
  - BODY HEIGHT DECREASED [None]
  - DRUG INEFFECTIVE [None]
  - JOINT SWELLING [None]
  - PNEUMONIA [None]
  - URINE OUTPUT DECREASED [None]
